FAERS Safety Report 5506786-7 (Version None)
Quarter: 2007Q4

REPORT INFORMATION
  Report Type: 
  Country: None (occurrence: None)
  Receive Date: 20071101
  Receipt Date: 20071025
  Transmission Date: 20080405
  Serious: Yes (Other)
  Sender: FDA-Public Use
  Company Number: CHPA2007US11269

PATIENT
  Age: 46 Year
  Sex: Female
  Weight: 55.8 kg

DRUGS (1)
  1. NICOTINE [Suspect]
     Dosage: 21 MG, QD, TRANSDERMAL
     Route: 062
     Dates: start: 20071015, end: 20071025

REACTIONS (4)
  - ASTHENIA [None]
  - CONCOMITANT DISEASE AGGRAVATED [None]
  - FATIGUE [None]
  - MENORRHAGIA [None]
